FAERS Safety Report 10015893 (Version 1)
Quarter: 2014Q1

REPORT INFORMATION
  Report Type: Spontaneous
  Country: FR (occurrence: FR)
  Receive Date: 20140317
  Receipt Date: 20140317
  Transmission Date: 20141002
  Serious: Yes (Hospitalization)
  Sender: FDA-Public Use
  Company Number: FR-BAYER-2014-035050

PATIENT
  Age: 42 Year
  Sex: Male

DRUGS (1)
  1. IZILOX [Suspect]
     Indication: SINUSITIS
     Dosage: UNK
     Route: 048
     Dates: start: 20131205, end: 20131213

REACTIONS (2)
  - Thirst [Recovered/Resolved]
  - Urine output increased [Recovered/Resolved]
